FAERS Safety Report 10359679 (Version 1)
Quarter: 2014Q3

REPORT INFORMATION
  Report Type: Spontaneous
  Country: US (occurrence: US)
  Receive Date: 20140804
  Receipt Date: 20140804
  Transmission Date: 20150326
  Serious: No
  Sender: FDA-Public Use
  Company Number: US-PFIZER INC-2014213540

PATIENT
  Age: 59 Year
  Sex: Female

DRUGS (1)
  1. NADOLOL. [Suspect]
     Active Substance: NADOLOL
     Dosage: 20 MG, UNK

REACTIONS (3)
  - Palpitations [Unknown]
  - Cough [Unknown]
  - Tinnitus [Unknown]
